FAERS Safety Report 6897737-1 (Version None)
Quarter: 2010Q3

REPORT INFORMATION
  Report Type: 
  Country: None (occurrence: None)
  Receive Date: 20100802
  Receipt Date: 20070711
  Transmission Date: 20110219
  Serious: No
  Sender: FDA-Public Use
  Company Number: US-PFIZER INC-2007058687

PATIENT
  Sex: Female
  Weight: 55.5 kg

DRUGS (12)
  1. LYRICA [Suspect]
     Indication: NEURALGIA
     Route: 048
     Dates: start: 20070522
  2. CYTOMEL [Concomitant]
  3. LEVOTHYROXINE SODIUM [Concomitant]
  4. FAMOTIDINE [Concomitant]
  5. DAPSONE [Concomitant]
  6. IMDUR [Concomitant]
  7. VERAPAMIL [Concomitant]
  8. OXYBUTYNIN CHLORIDE [Concomitant]
  9. ADVAIR DISKUS 100/50 [Concomitant]
  10. XALATAN [Concomitant]
  11. CYCLOSPORINE [Concomitant]
  12. TIMOPTIC [Concomitant]

REACTIONS (2)
  - DIARRHOEA [None]
  - THERAPEUTIC RESPONSE UNEXPECTED [None]
